FAERS Safety Report 5129219-1 (Version None)
Quarter: 2006Q4

REPORT INFORMATION
  Report Type: 
  Country: None (occurrence: None)
  Receive Date: 20061006
  Receipt Date: 20060922
  Transmission Date: 20070319
  Serious: Yes (Other)
  Sender: FDA-Public Use
  Company Number: THYM-11078

PATIENT
  Sex: 0

DRUGS (1)
  1. THYMOGLOBULIN [Suspect]
     Indication: RENAL TRANSPLANT

REACTIONS (4)
  - ARTHRALGIA [None]
  - COMPLICATIONS OF TRANSPLANTED KIDNEY [None]
  - PYREXIA [None]
  - SERUM SICKNESS [None]
